FAERS Safety Report 10046375 (Version 1)
Quarter: 2014Q1

REPORT INFORMATION
  Report Type: Spontaneous
  Country: US (occurrence: None)
  Receive Date: 20140328
  Receipt Date: 20140328
  Transmission Date: 20141002
  Serious: No
  Sender: FDA-Public Use
  Company Number: None

PATIENT
  Age: 30 Year
  Sex: Female
  Weight: 63.5 kg

DRUGS (1)
  1. SIBUTRAMINE [Suspect]
     Indication: WEIGHT DECREASED
     Dosage: 2 PILLS
     Dates: start: 20140307, end: 20140308

REACTIONS (4)
  - Abdominal pain upper [None]
  - Dizziness [None]
  - Dry mouth [None]
  - Treatment noncompliance [None]
